FAERS Safety Report 19652704 (Version 2)
Quarter: 2021Q3

REPORT INFORMATION
  Report Type: Spontaneous
  Country: DK (occurrence: DK)
  Receive Date: 20210803
  Receipt Date: 20210826
  Transmission Date: 20211014
  Serious: Yes (Death, Other)
  Sender: FDA-Public Use
  Company Number: DK-AMGEN-DNKSP2021116059

PATIENT

DRUGS (39)
  1. XGEVA [Suspect]
     Active Substance: DENOSUMAB
     Indication: BREAST CANCER
  2. GABAPENTIN. [Concomitant]
     Active Substance: GABAPENTIN
  3. PREDNISOLONE. [Concomitant]
     Active Substance: PREDNISOLONE
  4. CLAVULANIC ACID [Concomitant]
     Active Substance: CLAVULANIC ACID
     Dosage: 125 MILLIGRAM, TID
  5. BUDESONIDE. [Concomitant]
     Active Substance: BUDESONIDE
  6. FLUCONAZOLE. [Concomitant]
     Active Substance: FLUCONAZOLE
  7. CLINDAMYCIN. [Concomitant]
     Active Substance: CLINDAMYCIN
     Dosage: 600 MILLIGRAM
  8. PALBOCICLIB [Concomitant]
     Active Substance: PALBOCICLIB
  9. ACETYLSALICYLIC ACID [Concomitant]
     Active Substance: ASPIRIN
  10. FLUVASTATIN [Concomitant]
     Active Substance: FLUVASTATIN SODIUM
  11. LORAZEPAM. [Concomitant]
     Active Substance: LORAZEPAM
  12. RIBOCICLIB. [Concomitant]
     Active Substance: RIBOCICLIB
  13. CABAZITAXEL [Concomitant]
     Active Substance: CABAZITAXEL
  14. ZOPICLONE [Concomitant]
     Active Substance: ZOPICLONE
  15. AMOXICILLIN. [Concomitant]
     Active Substance: AMOXICILLIN
     Dosage: 500 MILLIGRAM
  16. DOCETAXEL. [Concomitant]
     Active Substance: DOCETAXEL
  17. DEXAMETHASONE. [Concomitant]
     Active Substance: DEXAMETHASONE
  18. PANTOPRAZOLE [Concomitant]
     Active Substance: PANTOPRAZOLE
  19. AMOXICILLIN. [Concomitant]
     Active Substance: AMOXICILLIN
     Dosage: 1000 MILLIGRAM
  20. LOSARTAN. [Concomitant]
     Active Substance: LOSARTAN
  21. OMEPRAZOLE. [Concomitant]
     Active Substance: OMEPRAZOLE
  22. FELODIPINE. [Concomitant]
     Active Substance: FELODIPINE
  23. MORPHINE [Concomitant]
     Active Substance: MORPHINE
  24. ENZALUTAMIDE [Concomitant]
     Active Substance: ENZALUTAMIDE
  25. REVLIMID [Concomitant]
     Active Substance: LENALIDOMIDE
  26. DARZALEX [Concomitant]
     Active Substance: DARATUMUMAB
  27. ATORVASTATIN [Concomitant]
     Active Substance: ATORVASTATIN
  28. AMITRIPTYLINE [Concomitant]
     Active Substance: AMITRIPTYLINE
  29. LEVOTHYROXINE. [Concomitant]
     Active Substance: LEVOTHYROXINE
  30. MIRTAZAPINE. [Concomitant]
     Active Substance: MIRTAZAPINE
  31. LETROZOLE. [Concomitant]
     Active Substance: LETROZOLE
  32. XGEVA [Suspect]
     Active Substance: DENOSUMAB
     Indication: PROSTATE CANCER
     Dosage: UNK
     Route: 065
  33. VINORELBINE [Concomitant]
     Active Substance: VINORELBINE TARTRATE
  34. RIVAROXABAN [Concomitant]
     Active Substance: RIVAROXABAN
  35. CITALOPRAM [Concomitant]
     Active Substance: CITALOPRAM HYDROBROMIDE
  36. ACYCLOVIR [ACICLOVIR] [Concomitant]
     Active Substance: ACYCLOVIR
  37. OXYCODONE [Concomitant]
     Active Substance: OXYCODONE
  38. LYRICA [Concomitant]
     Active Substance: PREGABALIN
  39. CLAVULANIC ACID [Concomitant]
     Active Substance: CLAVULANIC ACID
     Dosage: 250 MILLIGRAM

REACTIONS (10)
  - Bone pain [Unknown]
  - Tooth extraction [Unknown]
  - Neoplasm malignant [Unknown]
  - Depression [Unknown]
  - Spinal compression fracture [Unknown]
  - General physical health deterioration [Unknown]
  - Hip fracture [Unknown]
  - Pain [Unknown]
  - Death [Fatal]
  - Anxiety [Unknown]
